FAERS Safety Report 4704055-6 (Version None)
Quarter: 2005Q2

REPORT INFORMATION
  Report Type: 
  Country: None (occurrence: None)
  Receive Date: 20050629
  Receipt Date: 20050620
  Transmission Date: 20051028
  Serious: No
  Sender: FDA-Public Use
  Company Number: 12911418

PATIENT
  Age: 26 Year
  Sex: Male

DRUGS (1)
  1. NALTREXONE HCL [Suspect]
     Dosage: ORAL
     Route: 048

REACTIONS (3)
  - ANAPHYLACTIC REACTION [None]
  - CIRCULATORY COLLAPSE [None]
  - SWOLLEN TONGUE [None]
